FAERS Safety Report 16720565 (Version 1)
Quarter: 2019Q3

REPORT INFORMATION
  Report Type: Spontaneous
  Country: US (occurrence: US)
  Receive Date: 20190702
  Receipt Date: 20190702
  Transmission Date: 20191005
  Serious: No
  Sender: FDA-Public Use
  Company Number: None

PATIENT
  Age: 57 Year
  Sex: Male
  Weight: 79.38 kg

DRUGS (9)
  1. GENERIC FOR CRESTOR 40MG TABLETS [Suspect]
     Active Substance: ROSUVASTATIN CALCIUM
     Indication: BLOOD CHOLESTEROL INCREASED
     Dosage: ?          QUANTITY:1 DF DOSAGE FORM; PILL?
     Route: 048
     Dates: start: 20190311, end: 20190314
  2. SOMA [Concomitant]
     Active Substance: CARISOPRODOL
  3. VITAMIN D3 [Concomitant]
     Active Substance: CHOLECALCIFEROL
  4. VITAMIN B12 [Concomitant]
     Active Substance: CYANOCOBALAMIN
  5. 90 ROSUVASTATIN 40MG TAB [Suspect]
     Active Substance: ROSUVASTATIN
  6. VITAMINS B-2 [Concomitant]
  7. VITAMIN B-1 [Concomitant]
     Active Substance: THIAMINE HYDROCHLORIDE
  8. VITAMIN B-6 [Concomitant]
     Active Substance: PYRIDOXINE
  9. OXYCODONE [Concomitant]
     Active Substance: OXYCODONE

REACTIONS (2)
  - Abdominal discomfort [None]
  - Muscle spasms [None]

NARRATIVE: CASE EVENT DATE: 20190311
